FAERS Safety Report 13515135 (Version 1)
Quarter: 2017Q2

REPORT INFORMATION
  Report Type: Report from Study
  Country: DE (occurrence: DE)
  Receive Date: 20170504
  Receipt Date: 20170504
  Transmission Date: 20170830
  Serious: Yes (Hospitalization)
  Sender: FDA-Public Use
  Company Number: DE-TEVA-765914GER

PATIENT
  Sex: Female

DRUGS (15)
  1. VINCRISTINE [Suspect]
     Active Substance: VINCRISTINE
     Indication: B-CELL LYMPHOMA
     Dosage: 2 MILLIGRAM DAILY;
     Route: 042
     Dates: start: 20170414, end: 20170414
  2. FILGRASTIM [Suspect]
     Active Substance: FILGRASTIM
     Indication: B-CELL LYMPHOMA
     Dosage: 480 MICROGRAM DAILY;
     Route: 058
     Dates: start: 20170416, end: 20170418
  3. ACICLOVIR [Concomitant]
     Active Substance: ACYCLOVIR
     Indication: INFECTION PROPHYLAXIS
     Route: 048
  4. METAMIZOLE SODIUM (DIPYRONE SODIUM) [Concomitant]
     Indication: TUMOUR PAIN
     Dosage: 120 GTT DAILY;
     Route: 048
     Dates: start: 201704
  5. GRANISETRON [Concomitant]
     Active Substance: GRANISETRON
     Indication: NAUSEA
     Dosage: 2 MG, 3 X/D, PRN
     Route: 048
     Dates: start: 201704
  6. COLECALCIFEROL [Concomitant]
     Active Substance: CHOLECALCIFEROL
     Indication: VITAMIN D DEFICIENCY
     Route: 048
     Dates: start: 20170417
  7. SULFAMETHOXAZOLE/TRIMETHOPRIM [Concomitant]
     Active Substance: SULFAMETHOXAZOLE\TRIMETHOPRIM
     Indication: INFECTION PROPHYLAXIS
     Route: 048
  8. METOCLOPRAMIDE. [Concomitant]
     Active Substance: METOCLOPRAMIDE
     Indication: NAUSEA
     Dosage: 10 MG 3/D PRN
     Route: 048
     Dates: start: 201704
  9. ENOXAPARIN SODIUM. [Concomitant]
     Active Substance: ENOXAPARIN SODIUM
     Indication: THROMBOSIS PROPHYLAXIS
     Dosage: 4 ML DAILY;
     Route: 058
     Dates: start: 201704
  10. DOXORUBICIN [Suspect]
     Active Substance: DOXORUBICIN
     Indication: B-CELL LYMPHOMA
     Dosage: 82 MILLIGRAM DAILY;
     Route: 042
     Dates: start: 20170414, end: 20170414
  11. CYCLOPHOSPHAMIDE. [Suspect]
     Active Substance: CYCLOPHOSPHAMIDE
     Dosage: 1230 MILLIGRAM DAILY;
     Route: 042
     Dates: start: 20170414, end: 20170414
  12. BUPRENORPHIN [Concomitant]
     Active Substance: BUPRENORPHINE
     Indication: TUMOUR PAIN
     Dosage: 50 CM2 (3 IN 1 WK)
     Route: 065
     Dates: start: 201704
  13. PREDNISOLONE. [Suspect]
     Active Substance: PREDNISOLONE
     Indication: B-CELL LYMPHOMA
     Dosage: 100 MILLIGRAM DAILY;
     Route: 065
     Dates: start: 20170414, end: 20170418
  14. RITUXIMAB [Suspect]
     Active Substance: RITUXIMAB
     Dosage: 615 MILLIGRAM DAILY;
     Route: 042
     Dates: start: 20170413, end: 20170413
  15. LACTULOSE. [Concomitant]
     Active Substance: LACTULOSE
     Indication: CONSTIPATION
     Dosage: 20 ML DAILY;
     Route: 048
     Dates: start: 201704

REACTIONS (2)
  - Vomiting [Not Recovered/Not Resolved]
  - Nausea [Not Recovered/Not Resolved]

NARRATIVE: CASE EVENT DATE: 20170418
